FAERS Safety Report 13416911 (Version 1)
Quarter: 2017Q2

REPORT INFORMATION
  Report Type: Other
  Country: US (occurrence: US)
  Receive Date: 20170407
  Receipt Date: 20170407
  Transmission Date: 20170830
  Serious: Yes (Other)
  Sender: FDA-Public Use
  Company Number: US-NEXGEN PHARMA, INC.-1065149

PATIENT
  Age: 53 Year
  Sex: Female

DRUGS (1)
  1. CHENODIOL TABLETS 250 MG [Suspect]
     Active Substance: CHENODIOL
     Indication: XANTHOMATOSIS
     Route: 048
     Dates: start: 20100610

REACTIONS (2)
  - Urinary tract infection [Unknown]
  - Osteoarthritis [Unknown]
